FAERS Safety Report 6272237-0 (Version None)
Quarter: 2009Q3

REPORT INFORMATION
  Report Type: 
  Country: None (occurrence: None)
  Receive Date: 20090717
  Receipt Date: 20090707
  Transmission Date: 20100115
  Serious: Yes (Hospitalization)
  Sender: FDA-Public Use
  Company Number: FR-JNJFOC-20090705506

PATIENT
  Sex: Male

DRUGS (3)
  1. ZALDIAR [Suspect]
     Indication: OSTEOARTHRITIS
     Route: 048
  2. NEXEN [Suspect]
     Indication: OSTEOARTHRITIS
     Route: 048
  3. LODOZ [Concomitant]
     Route: 065

REACTIONS (9)
  - CHRONIC LYMPHOCYTIC LEUKAEMIA [None]
  - CONFUSIONAL STATE [None]
  - DEMENTIA [None]
  - DISORIENTATION [None]
  - EXTRAPYRAMIDAL DISORDER [None]
  - GAIT DISTURBANCE [None]
  - HALLUCINATION [None]
  - MUSCULOSKELETAL STIFFNESS [None]
  - PARKINSON'S DISEASE [None]
